FAERS Safety Report 16945265 (Version 1)
Quarter: 2019Q4

REPORT INFORMATION
  Report Type: Spontaneous
  Country: US (occurrence: US)
  Receive Date: 20191021
  Receipt Date: 20191021
  Transmission Date: 20200122
  Serious: No
  Sender: FDA-Public Use
  Company Number: None

PATIENT
  Age: 35 Year
  Sex: Male
  Weight: 77.4 kg

DRUGS (3)
  1. MULTIVITAMIN [Concomitant]
     Active Substance: VITAMINS
  2. GABAPENTIN. [Concomitant]
     Active Substance: GABAPENTIN
  3. FINASTERIDE 1MG [Suspect]
     Active Substance: FINASTERIDE
     Indication: ALOPECIA
     Dosage: ?          QUANTITY:1 TABLET(S);?
     Route: 048
     Dates: start: 20190527, end: 20190627

REACTIONS (10)
  - Anxiety [None]
  - Post-traumatic stress disorder [None]
  - Erectile dysfunction [None]
  - Body dysmorphic disorder [None]
  - Libido decreased [None]
  - Scrotal swelling [None]
  - Anger [None]
  - Stress [None]
  - Ejaculation disorder [None]
  - Penile size reduced [None]

NARRATIVE: CASE EVENT DATE: 20190617
